FAERS Safety Report 16711005 (Version 8)
Quarter: 2021Q2

REPORT INFORMATION
  Report Type: Spontaneous
  Country: CA (occurrence: CA)
  Receive Date: 20190816
  Receipt Date: 20210616
  Transmission Date: 20210716
  Serious: Yes (Death, Other)
  Sender: FDA-Public Use
  Company Number: CA-PFIZER INC-2018119659

PATIENT
  Age: 78 Year
  Sex: Female

DRUGS (6)
  1. IBRANCE [Suspect]
     Active Substance: PALBOCICLIB
     Indication: BREAST CANCER METASTATIC
     Dosage: 125 MG, CYCLIC (DAILY FOR 21 DAYS, OFF 7 DAYS)
     Route: 048
     Dates: start: 20180430
  2. IBRANCE [Suspect]
     Active Substance: PALBOCICLIB
     Dosage: 100 MG, CYCLIC (DAILY X 21 DAYS OFF 7 DAYS)
     Route: 048
  3. CAPECITABINE. [Concomitant]
     Active Substance: CAPECITABINE
     Dosage: VARYING DOSES, CYCLIC (TWICE A DAY 14 DAYS, 7 DAYS OFF)
     Dates: start: 201509
  4. PAMIDRONATE [Concomitant]
     Active Substance: PAMIDRONATE DISODIUM
     Dosage: 90 MG, MONTHLY
     Dates: start: 201509
  5. ZOLEDRONIC ACID [Concomitant]
     Active Substance: ZOLEDRONIC ACID
     Dosage: 4 MG, (EVERY) 3/12
  6. FASLODEX [Concomitant]
     Active Substance: FULVESTRANT
     Dosage: UNK

REACTIONS (6)
  - Myocardial infarction [Unknown]
  - Death [Fatal]
  - Device loosening [Unknown]
  - Procedural complication [Unknown]
  - Tooth abscess [Unknown]
  - Blood test abnormal [Not Recovered/Not Resolved]
